FAERS Safety Report 10236096 (Version 1)
Quarter: 2014Q1

REPORT INFORMATION
  Report Type: Spontaneous
  Country: US (occurrence: None)
  Receive Date: 20140306
  Receipt Date: 20140306
  Transmission Date: 20141002
  Serious: Yes (Hospitalization)
  Sender: FDA-Public Use
  Company Number: 163-21880-13111505

PATIENT
  Age: 72 Year
  Sex: Female

DRUGS (6)
  1. REVLIMID [Suspect]
     Indication: CHRONIC LYMPHOCYTIC LEUKAEMIA
     Dosage: 5 MG, 28 IN 28 D, PO?10/22/2013 - TEMPORARILY INTERRUPTED
     Route: 048
     Dates: start: 20131022
  2. SINGULAIR [Concomitant]
  3. VERAMYST (FLUTICASONE FUROATE) [Concomitant]
  4. PREDNISONE (PREDNISONE) [Concomitant]
  5. WARFARIN SODIUM (WARFARIN SODIUM) [Concomitant]
  6. CARDIZEM (DILTIAZEM HYDROCHLORIDE) [Concomitant]

REACTIONS (4)
  - Febrile neutropenia [None]
  - Dehydration [None]
  - Full blood count decreased [None]
  - Fatigue [None]
